FAERS Safety Report 14799309 (Version 1)
Quarter: 2018Q2

REPORT INFORMATION
  Report Type: Spontaneous
  Country: US (occurrence: US)
  Receive Date: 20180424
  Receipt Date: 20180424
  Transmission Date: 20180711
  Serious: No
  Sender: FDA-Public Use
  Company Number: US-009507513-1804USA007162

PATIENT
  Sex: Male

DRUGS (1)
  1. JANUMET XR [Suspect]
     Active Substance: METFORMIN HYDROCHLORIDE\SITAGLIPTIN PHOSPHATE
     Dosage: 1 TABLET (50/1000 MG) TWICE DAILY: IN THE MORNING AND IN THE EVENING
     Route: 048

REACTIONS (2)
  - Somnolence [Unknown]
  - Inappropriate schedule of drug administration [Unknown]
